FAERS Safety Report 5895156-8 (Version None)
Quarter: 2008Q3

REPORT INFORMATION
  Report Type: 
  Country: None (occurrence: None)
  Receive Date: 20080924
  Receipt Date: 20080911
  Transmission Date: 20090109
  Serious: Yes (Other)
  Sender: FDA-Public Use
  Company Number: BR-PFIZER INC-2008077714

PATIENT
  Age: 46 Year
  Sex: Female
  Weight: 70 kg

DRUGS (6)
  1. ALDACTONE [Suspect]
     Indication: SWELLING
     Route: 048
     Dates: start: 20050101
  2. ALPRAZOLAM [Concomitant]
  3. BEFACT [Concomitant]
  4. CIPROFLOXACIN [Concomitant]
  5. VALSARTAN [Concomitant]
  6. MELOXICAM [Concomitant]

REACTIONS (1)
  - POLYURIA [None]
